FAERS Safety Report 26079358 (Version 1)
Quarter: 2025Q4

REPORT INFORMATION
  Report Type: Spontaneous
  Country: US (occurrence: US)
  Receive Date: 20251123
  Receipt Date: 20251123
  Transmission Date: 20260118
  Serious: No
  Sender: GALPHARM INTERNATIONAL
  Company Number: US-PERRIGO-25US010067

PATIENT
  Sex: Female

DRUGS (1)
  1. OPILL [Suspect]
     Active Substance: NORGESTREL
     Indication: Menstrual cycle management
     Dosage: 0.075 MG, THREE TIMES
     Route: 048

REACTIONS (2)
  - Diarrhoea [Unknown]
  - Product use in unapproved indication [Recovered/Resolved]
